FAERS Safety Report 4559074-X (Version None)
Quarter: 2005Q1

REPORT INFORMATION
  Report Type: 
  Country: None (occurrence: None)
  Receive Date: 20050119
  Receipt Date: 20050107
  Transmission Date: 20050727
  Serious: Yes (Hospitalization)
  Sender: FDA-Public Use
  Company Number: 001-0981-M0002341

PATIENT
  Age: 64 Year
  Sex: Male
  Weight: 83.0083 kg

DRUGS (12)
  1. ATORVASTATIN (ATORVASTATIN) [Suspect]
     Indication: CORONARY ARTERY DISEASE
     Dosage: SEE IMAGE
     Route: 048
     Dates: start: 19990617, end: 19990811
  2. ATORVASTATIN (ATORVASTATIN) [Suspect]
     Indication: CORONARY ARTERY DISEASE
     Dosage: SEE IMAGE
     Route: 048
     Dates: start: 19990812
  3. ATENOLOL [Concomitant]
  4. ISOSORBIDE DINITRATE [Concomitant]
  5. ASPIRIN [Concomitant]
  6. NITROGLYCERIN [Concomitant]
  7. ASCORBIC ACID [Concomitant]
  8. MULTIVITAMINS (ASCORBIC ACID, ERGOCALCIFEROL, FOLIC ACID, NICOTINAMIDE [Concomitant]
  9. TOCOPHEROL (TOCOPHEROL) [Concomitant]
  10. CALCIUM (CALCIUM) [Concomitant]
  11. TERAZOSIN (TERAZOSIN) [Concomitant]
  12. OMEPRAZOLE [Concomitant]

REACTIONS (8)
  - ATRIAL FIBRILLATION [None]
  - DEPRESSED LEVEL OF CONSCIOUSNESS [None]
  - HAEMOGLOBIN DECREASED [None]
  - HYPOTENSION [None]
  - MYOCARDIAL INFARCTION [None]
  - SICK SINUS SYNDROME [None]
  - SINUS BRADYCARDIA [None]
  - TONIC CLONIC MOVEMENTS [None]
